FAERS Safety Report 6147542-9 (Version None)
Quarter: 2009Q2

REPORT INFORMATION
  Report Type: 
  Country: None (occurrence: None)
  Receive Date: 20090408
  Receipt Date: 20090309
  Transmission Date: 20091009
  Serious: No
  Sender: FDA-Public Use
  Company Number: US-BAYER-200910793BCC

PATIENT
  Age: 64 Year
  Sex: Female
  Weight: 77 kg

DRUGS (10)
  1. ALEVE (CAPLET) [Suspect]
     Indication: ARTHRALGIA
     Dosage: TOTAL DAILY DOSE: 440 MG  UNIT DOSE: 220 MG
     Route: 048
     Dates: start: 20090306
  2. LIPITOR [Concomitant]
  3. PREMARIN [Concomitant]
  4. ALCOHOL [Concomitant]
  5. ASPIRIN [Concomitant]
  6. NATURES BOUNTY VITAMIN C [Concomitant]
  7. NATURES BOUNTY VITAMIN E [Concomitant]
  8. OSCAL CALCIUM 500 -D [Concomitant]
  9. FLINTSTONES WITH VITAMIN C [Concomitant]
  10. 3 GLASSES OF WINE [Concomitant]

REACTIONS (1)
  - DIPLOPIA [None]
